FAERS Safety Report 9703838 (Version 2)
Quarter: 2014Q2

REPORT INFORMATION
  Report Type: Spontaneous
  Country: US (occurrence: US)
  Receive Date: 20131122
  Receipt Date: 20140409
  Transmission Date: 20141212
  Serious: Yes (Hospitalization, Other)
  Sender: FDA-Public Use
  Company Number: US-BAYER-2013-138780

PATIENT
  Age: 81 Year
  Sex: Male
  Weight: 90.7 kg

DRUGS (7)
  1. ALEVE CAPLET [Suspect]
     Indication: BACK PAIN
     Dosage: 2 DF, QD
     Route: 048
     Dates: start: 20131101, end: 20131112
  2. ALEVE CAPLET [Suspect]
     Indication: BACK PAIN
     Dosage: 2 DF, QD
     Route: 048
     Dates: start: 20140102, end: 20140314
  3. ACTOS [Concomitant]
     Indication: TYPE 2 DIABETES MELLITUS
     Dosage: 45 DAILY
     Dates: start: 2005
  4. JANUVIA [Concomitant]
     Indication: TYPE 1 DIABETES MELLITUS
     Dosage: 100 DAILY
     Dates: start: 2010
  5. METFORMIN [Concomitant]
     Indication: TYPE 2 DIABETES MELLITUS
     Dosage: 1000 DAILY
     Dates: start: 2005
  6. LISINOPRIL [Concomitant]
     Dosage: 10 DAILY
     Dates: start: 2005
  7. CRESTOR [Concomitant]
     Dosage: 20 DAILY
     Dates: start: 2005

REACTIONS (8)
  - Metastases to liver [Not Recovered/Not Resolved]
  - Metastases to bone [Not Recovered/Not Resolved]
  - Pleural effusion [Not Recovered/Not Resolved]
  - Small cell lung cancer [Not Recovered/Not Resolved]
  - Pleural effusion [Not Recovered/Not Resolved]
  - Weight increased [Recovered/Resolved]
  - Dyspnoea [Not Recovered/Not Resolved]
  - Incorrect drug administration duration [None]
